FAERS Safety Report 8572975-0 (Version None)
Quarter: 2012Q3

REPORT INFORMATION
  Report Type: 
  Country: None (occurrence: None)
  Receive Date: 20120806
  Receipt Date: 20120731
  Transmission Date: 20120928
  Serious: Yes (Hospitalization)
  Sender: FDA-Public Use
  Company Number: US-GILEAD-2012-0058357

PATIENT
  Sex: Female

DRUGS (2)
  1. LETAIRIS [Suspect]
     Indication: PULMONARY HYPERTENSION
     Dosage: UNK
  2. LETAIRIS [Suspect]
     Indication: CREST SYNDROME

REACTIONS (2)
  - LABORATORY TEST ABNORMAL [None]
  - BLOOD SODIUM DECREASED [None]
